FAERS Safety Report 18651965 (Version 2)
Quarter: 2020Q4

REPORT INFORMATION
  Report Type: Report from Study
  Country: US (occurrence: US)
  Receive Date: 20201222
  Receipt Date: 20201224
  Transmission Date: 20210114
  Serious: Yes (Other)
  Sender: FDA-Public Use
  Company Number: US-BAUSCH-BL-2020-037725

PATIENT
  Age: 70 Year
  Sex: Male

DRUGS (9)
  1. PROTONIX [Concomitant]
     Active Substance: PANTOPRAZOLE SODIUM
     Indication: PRODUCT USED FOR UNKNOWN INDICATION
     Route: 048
  2. DUPHALAC [Concomitant]
     Active Substance: LACTULOSE
     Indication: HEPATIC ENCEPHALOPATHY
     Dosage: AS REQUIRED (10 BM/DAILY)
  3. DUPHALAC [Concomitant]
     Active Substance: LACTULOSE
     Dosage: STOP IF HAD THREE BOWEL MOVEMENTS TOFAY
     Route: 048
  4. NORVASC [Concomitant]
     Active Substance: AMLODIPINE BESYLATE
     Indication: HYPERTENSION
  5. COREG [Concomitant]
     Active Substance: CARVEDILOL
     Indication: HYPERTROPHIC CARDIOMYOPATHY
     Dosage: WITH MEALS
     Route: 048
  6. LIDODERM [Concomitant]
     Active Substance: LIDOCAINE
     Indication: PRODUCT USED FOR UNKNOWN INDICATION
     Route: 061
  7. ULTRAM [Concomitant]
     Active Substance: TRAMADOL HYDROCHLORIDE
     Indication: PRODUCT USED FOR UNKNOWN INDICATION
     Dosage: WHEN NECESSARY
     Route: 048
  8. XIFAXAN [Suspect]
     Active Substance: RIFAXIMIN
     Indication: HEPATIC ENCEPHALOPATHY
     Route: 048
     Dates: start: 202010, end: 20201211
  9. ZOFRAN [Concomitant]
     Active Substance: ONDANSETRON HYDROCHLORIDE
     Indication: PRODUCT USED FOR UNKNOWN INDICATION
     Dosage: EVERY 8 HOURS (WHEN NECESSARY)
     Route: 048

REACTIONS (13)
  - Haemorrhage [Unknown]
  - Weight increased [Unknown]
  - Ascites [Unknown]
  - Platelet count decreased [Unknown]
  - Quality of life decreased [Unknown]
  - Haematocrit decreased [Unknown]
  - Dyspnoea [Unknown]
  - Therapy interrupted [Unknown]
  - Renal impairment [Unknown]
  - Haemoglobin decreased [Unknown]
  - Spider naevus [Unknown]
  - Red blood cell count decreased [Unknown]
  - Oedema peripheral [Unknown]

NARRATIVE: CASE EVENT DATE: 2020
